FAERS Safety Report 6454284-9 (Version None)
Quarter: 2009Q4

REPORT INFORMATION
  Report Type: 
  Country: None (occurrence: None)
  Receive Date: 20091124
  Receipt Date: 20091111
  Transmission Date: 20100525
  Serious: Yes (Hospitalization)
  Sender: FDA-Public Use
  Company Number: SI-ELI_LILLY_AND_COMPANY-SI200906004559

PATIENT
  Sex: Male
  Weight: 25 kg

DRUGS (5)
  1. STRATTERA [Suspect]
     Indication: ATTENTION DEFICIT/HYPERACTIVITY DISORDER
     Dosage: 10 MG, DAILY (1/D)
     Route: 048
     Dates: start: 20090305
  2. CIRCADIN [Concomitant]
     Dosage: 4 D/F, UNK
  3. EPILEPTISIN [Concomitant]
  4. CERSON [Concomitant]
  5. DIAZEPAM [Concomitant]
     Dosage: UNK, AS NEEDED

REACTIONS (1)
  - EPILEPSY [None]
